FAERS Safety Report 15469031 (Version 2)
Quarter: 2018Q4

REPORT INFORMATION
  Report Type: Spontaneous
  Country: HR (occurrence: HR)
  Receive Date: 20181005
  Receipt Date: 20181206
  Transmission Date: 20190205
  Serious: Yes (Hospitalization, Other)
  Sender: FDA-Public Use
  Company Number: HR-BRISTOL-MYERS SQUIBB COMPANY-BMS-2018-090547

PATIENT
  Age: 67 Year
  Sex: Male

DRUGS (1)
  1. OPDIVO [Suspect]
     Active Substance: NIVOLUMAB
     Indication: RENAL CELL CARCINOMA
     Dosage: 240 ML, Q2WK
     Route: 042

REACTIONS (6)
  - Pleural effusion [Unknown]
  - Fatigue [Unknown]
  - Asthenia [Unknown]
  - Cardiac failure [Unknown]
  - Oedema peripheral [Unknown]
  - Myalgia [Unknown]
